FAERS Safety Report 8778481 (Version 1)
Quarter: 2012Q4

REPORT INFORMATION
  Report Type: 
  Country: BE (occurrence: BE)
  Receive Date: 20120912
  Receipt Date: 20120912
  Transmission Date: 20130627
  Serious: Yes (Other)
  Sender: FDA-Public Use
  Company Number: BE-GLAXOSMITHKLINE-B0829405A

PATIENT
  Age: 64 Year
  Sex: Male

DRUGS (1)
  1. REQUIP-MODUTAB [Suspect]
     Indication: PARKINSON^S DISEASE
     Route: 065
     Dates: start: 2010

REACTIONS (1)
  - Sudden onset of sleep [Recovered/Resolved]
